FAERS Safety Report 10240778 (Version 1)
Quarter: 2014Q2

REPORT INFORMATION
  Report Type: Spontaneous
  Country: US (occurrence: US)
  Receive Date: 20140617
  Receipt Date: 20140617
  Transmission Date: 20141212
  Serious: No
  Sender: FDA-Public Use
  Company Number: US-PFIZER INC-2014161761

PATIENT
  Age: 82 Year
  Sex: Female
  Weight: 58.5 kg

DRUGS (3)
  1. ADVIL [Suspect]
     Indication: BACK PAIN
     Dosage: UNK, AS NEEDED
  2. ADVIL [Suspect]
     Indication: ARTHRALGIA
  3. ADVIL [Suspect]
     Indication: HEADACHE

REACTIONS (4)
  - Poor quality drug administered [Unknown]
  - Swelling [Unknown]
  - Bronchitis [Unknown]
  - Product physical issue [Unknown]
